FAERS Safety Report 4922058-3 (Version None)
Quarter: 2006Q1

REPORT INFORMATION
  Report Type: 
  Country: None (occurrence: None)
  Receive Date: 20060222
  Receipt Date: 20060222
  Transmission Date: 20060701
  Serious: Yes (Hospitalization)
  Sender: FDA-Public Use
  Company Number: None

PATIENT
  Age: 61 Year
  Sex: Female
  Weight: 41.7309 kg

DRUGS (14)
  1. CLOPIDOGREL [Suspect]
     Indication: CORONARY ARTERY DISEASE
     Dosage: 75 MG DAILY
  2. CELEBREX [Suspect]
     Indication: PAIN
  3. PHENERGAN [Concomitant]
  4. VICODIN [Concomitant]
  5. ZANTAC [Concomitant]
  6. PLAVIX [Concomitant]
  7. COREG [Concomitant]
  8. FLUOXETINE HCL [Concomitant]
  9. LIPITOR [Concomitant]
  10. CELEBREX [Concomitant]
  11. HYDROCHLOROTHIAZIDE [Concomitant]
  12. NITRO SL [Concomitant]
  13. NASAL SPRAY [Concomitant]
  14. MORPHINE [Concomitant]

REACTIONS (1)
  - POST PROCEDURAL HAEMORRHAGE [None]
